FAERS Safety Report 4310508-5 (Version None)
Quarter: 2004Q1

REPORT INFORMATION
  Report Type: 
  Country: None (occurrence: None)
  Receive Date: 20040302
  Receipt Date: 20040212
  Transmission Date: 20041129
  Serious: Yes (Hospitalization)
  Sender: FDA-Public Use
  Company Number: F01200400260

PATIENT
  Age: 69 Year
  Sex: Male

DRUGS (3)
  1. OXALIPLATIN - SOLUTION - 299 MG [Suspect]
     Indication: COLON CANCER
     Dosage: 299 MG Q3W
     Route: 042
     Dates: start: 20040123, end: 20040123
  2. OXALIPLATIN - SOLUTION - 299 MG [Suspect]
     Indication: SURGERY
     Dosage: 299 MG Q3W
     Route: 042
     Dates: start: 20040123, end: 20040123
  3. CAPECITABINE - TABLET - 2300 MG [Suspect]
     Dosage: 2300 MG TWICE A DAY PER ORAL FROM D1
     Route: 048
     Dates: start: 20040123

REACTIONS (1)
  - MYOCARDIAL INFARCTION [None]
